FAERS Safety Report 26216034 (Version 1)
Quarter: 2025Q4

REPORT INFORMATION
  Report Type: Spontaneous
  Country: CN (occurrence: CN)
  Receive Date: 20251231
  Receipt Date: 20251231
  Transmission Date: 20260117
  Serious: Yes (Other)
  Sender: SANOFI AVENTIS
  Company Number: CN-SA-2025SA384787

PATIENT
  Age: 52 Year
  Sex: Female
  Weight: 85 kg

DRUGS (3)
  1. SOLIQUA 100/33 [Suspect]
     Active Substance: INSULIN GLARGINE\LIXISENATIDE
     Indication: Diabetes mellitus inadequate control
     Dosage: 17 IU, QD
     Route: 058
     Dates: start: 20251222, end: 20251222
  2. INSULIN LISPRO [Suspect]
     Active Substance: INSULIN LISPRO
     Indication: Diabetes mellitus inadequate control
     Dosage: 7 IU, QD
     Route: 058
     Dates: start: 20251217, end: 20251219
  3. INSULIN LISPRO [Suspect]
     Active Substance: INSULIN LISPRO
     Dosage: 10 IU PUMP INJECTION
     Dates: start: 20251222, end: 20251222

REACTIONS (5)
  - Drug-induced liver injury [Unknown]
  - Hepatic function abnormal [Unknown]
  - Neurodermatitis [Unknown]
  - Pruritus [Unknown]
  - Rash erythematous [Unknown]

NARRATIVE: CASE EVENT DATE: 20251222
